FAERS Safety Report 19165639 (Version 4)
Quarter: 2022Q1

REPORT INFORMATION
  Report Type: Spontaneous
  Country: US (occurrence: US)
  Receive Date: 20210421
  Receipt Date: 20220303
  Transmission Date: 20220423
  Serious: No
  Sender: FDA-Public Use
  Company Number: US-ZOGENIX INTERNATIONAL LIMITED, A WHOLLY OWNED SUBSIDIARY OF ZOGENIX, INC.-2021ZX000054

PATIENT
  Age: 10 Year
  Sex: Female

DRUGS (9)
  1. FINTEPLA [Suspect]
     Active Substance: FENFLURAMINE
     Indication: Severe myoclonic epilepsy of infancy
     Route: 048
     Dates: start: 202009
  2. FINTEPLA [Suspect]
     Active Substance: FENFLURAMINE
     Dosage: 1.6 ML AM?1.4 ML PM
     Route: 048
     Dates: start: 20210213
  3. FINTEPLA [Suspect]
     Active Substance: FENFLURAMINE
     Route: 048
  4. CLOBAZAM [Concomitant]
     Active Substance: CLOBAZAM
     Indication: Severe myoclonic epilepsy of infancy
     Route: 048
     Dates: start: 20190301
  5. Depakote Sprinke [Concomitant]
     Indication: Severe myoclonic epilepsy of infancy
     Route: 065
     Dates: start: 20190301
  6. SELENIUM [Concomitant]
     Active Substance: SELENIUM
     Indication: Mineral deficiency
     Route: 065
     Dates: start: 20190301
  7. LEVOCARNITINE [Concomitant]
     Active Substance: LEVOCARNITINE
     Indication: Nutritional supplementation
     Route: 065
     Dates: start: 201903
  8. DIACOMIT [Concomitant]
     Active Substance: STIRIPENTOL
     Indication: Severe myoclonic epilepsy of infancy
     Route: 065
     Dates: start: 20190301
  9. UNSPECIFIED INGREDIENT [Concomitant]
     Active Substance: UNSPECIFIED INGREDIENT
     Indication: Product used for unknown indication
     Route: 065
     Dates: start: 20210602

REACTIONS (1)
  - Diarrhoea [Not Recovered/Not Resolved]

NARRATIVE: CASE EVENT DATE: 20200301
